FAERS Safety Report 18307928 (Version 4)
Quarter: 2024Q3

REPORT INFORMATION
  Report Type: Spontaneous
  Country: PL (occurrence: PL)
  Receive Date: 20200924
  Receipt Date: 20240909
  Transmission Date: 20241016
  Serious: Yes (Other)
  Sender: MERCK
  Company Number: PL-009507513-2009POL007254

PATIENT
  Age: 32 Year
  Sex: Male

DRUGS (4)
  1. TEMOZOLOMIDE [Suspect]
     Active Substance: TEMOZOLOMIDE
     Indication: Pancreatic neuroendocrine tumour
     Dosage: 200 MG/M2, 10TH-14TH DAY, CYCLE OF 28 DAYS
     Dates: start: 2017
  2. TEMOZOLOMIDE [Suspect]
     Active Substance: TEMOZOLOMIDE
     Dosage: 200 MG/M2, 10TH-14TH DAY, CYCLE OF 28 DAYS
     Dates: start: 201904, end: 201911
  3. CAPECITABINE [Suspect]
     Active Substance: CAPECITABINE
     Indication: Pancreatic neuroendocrine tumour
     Dosage: 2X750 MG/M2 1-14 DAY
     Dates: start: 2017
  4. CAPECITABINE [Suspect]
     Active Substance: CAPECITABINE
     Dosage: 2X750 MG/M2 1-14 DAY
     Dates: start: 201904, end: 201911

REACTIONS (6)
  - Malignant neoplasm progression [Unknown]
  - Metastases to liver [Unknown]
  - Bone pain [Unknown]
  - Asthenia [Unknown]
  - Myalgia [Unknown]
  - Off label use [Unknown]

NARRATIVE: CASE EVENT DATE: 20170101
